FAERS Safety Report 8379663-4 (Version None)
Quarter: 2012Q1

REPORT INFORMATION
  Report Type: 
  Country: None (occurrence: None)
  Receive Date: 20120323
  Receipt Date: 20110322
  Transmission Date: 20120608
  Serious: Yes (Hospitalization)
  Sender: FDA-Public Use
  Company Number: 163-21880-11032677

PATIENT
  Age: 54 Year
  Sex: Male
  Weight: 101.6057 kg

DRUGS (10)
  1. LISINOPRIL [Concomitant]
  2. OXYCODONE-ACETAMINOPHEN (OXYCOCET) [Concomitant]
  3. AMBIEN CR [Concomitant]
  4. SIMVASTATIN [Concomitant]
  5. LOVAGA (OMEGA-3 MARINE TRIGLYCERIDES) [Concomitant]
  6. CALCIUM CARBONATE [Concomitant]
  7. METFORMIN ER (METFORMIN HYDROCHLORIDE) [Concomitant]
  8. GLYBURIDE [Concomitant]
  9. DEXAMETHASONE [Concomitant]
  10. REVLIMID [Suspect]
     Indication: MULTIPLE MYELOMA
     Dosage: 10 MG, 1 IN 1 D, PO
     Route: 048
     Dates: start: 20110101, end: 20110301

REACTIONS (1)
  - NEUTROPENIA [None]
